FAERS Safety Report 9104555 (Version 1)
Quarter: 2013Q1

REPORT INFORMATION
  Report Type: Spontaneous
  Country: GR (occurrence: GR)
  Receive Date: 20130220
  Receipt Date: 20130220
  Transmission Date: 20140127
  Serious: Yes (Death)
  Sender: FDA-Public Use
  Company Number: GR-ROCHE-1190917

PATIENT
  Age: 39 Year
  Sex: Female

DRUGS (5)
  1. BEVACIZUMAB [Suspect]
     Indication: BREAST CANCER
     Route: 065
  2. 5-FLUOROURACIL [Suspect]
     Indication: BREAST CANCER
     Route: 065
  3. EPIRUBICIN [Suspect]
     Indication: BREAST CANCER
     Route: 065
  4. CYCLOPHOSPHAMIDE [Suspect]
     Indication: BREAST CANCER
     Route: 065
  5. TAXOTERE [Suspect]
     Indication: BREAST CANCER
     Route: 065

REACTIONS (5)
  - Hepatic steatosis [Fatal]
  - Cholecystitis acute [Fatal]
  - Ascites [Fatal]
  - Hepatic failure [Fatal]
  - Pelvic venous thrombosis [Fatal]
